FAERS Safety Report 5197121-5 (Version None)
Quarter: 2007Q1

REPORT INFORMATION
  Report Type: 
  Country: None (occurrence: None)
  Receive Date: 20070103
  Receipt Date: 20070102
  Transmission Date: 20070707
  Serious: Yes (Other)
  Sender: FDA-Public Use
  Company Number: 2006-007883

PATIENT
  Age: 61 Year
  Sex: Male

DRUGS (12)
  1. FLOLAN [Suspect]
     Route: 065
     Dates: start: 20060621
  2. LANTUS [Concomitant]
     Dosage: 30U AS REQUIRED
     Route: 058
  3. TRAZODONE HCL [Concomitant]
     Indication: DEPRESSION
     Dosage: 50MG AT NIGHT
     Route: 048
  4. METOLAZONE [Concomitant]
     Indication: DIURETIC THERAPY
     Dosage: 2.5MG PER DAY
     Route: 048
  5. AMIODARONE HCL [Concomitant]
     Indication: VENTRICULAR ARRHYTHMIA
     Dosage: 200MG PER DAY
     Route: 048
  6. FOLIC ACID [Concomitant]
     Dosage: 1MG PER DAY
     Route: 048
  7. LACTULOSE [Concomitant]
     Indication: CONSTIPATION
     Dosage: 15ML AS REQUIRED
     Route: 048
  8. KLOR-CON [Concomitant]
     Dosage: 40MEQ THREE TIMES PER DAY
     Route: 048
  9. OXYMETAZOLINE [Concomitant]
     Indication: NASAL CONGESTION
     Dosage: 1SPR AS REQUIRED
     Route: 045
  10. PREVACID [Concomitant]
     Dosage: 30MG PER DAY
     Route: 048
  11. FUROSEMIDE [Concomitant]
     Indication: DIURETIC THERAPY
     Dosage: 40MG PER DAY
     Route: 048
  12. GLYBURIDE [Concomitant]
     Dosage: 5MG PER DAY
     Route: 048

REACTIONS (9)
  - ABDOMINAL PAIN [None]
  - BEDRIDDEN [None]
  - BLOOD PRESSURE FLUCTUATION [None]
  - BLOOD PRESSURE INCREASED [None]
  - HEADACHE [None]
  - NAUSEA [None]
  - PAIN [None]
  - VISION BLURRED [None]
  - VISUAL ACUITY REDUCED [None]
